FAERS Safety Report 14141711 (Version 1)
Quarter: 2017Q4

REPORT INFORMATION
  Report Type: Spontaneous
  Country: BR (occurrence: BR)
  Receive Date: 20171030
  Receipt Date: 20171030
  Transmission Date: 20180321
  Serious: Yes (Hospitalization, Other)
  Sender: FDA-Public Use
  Company Number: BR-GLAXOSMITHKLINE-BR2017GSK147814

PATIENT
  Sex: Female
  Weight: 15 kg

DRUGS (2)
  1. ZINNAT [Suspect]
     Active Substance: CEFUROXIME AXETIL
     Indication: SINUSITIS
     Dosage: 4 ML, BID
     Route: 048
     Dates: start: 20170920, end: 20170920
  2. PRELONE [Concomitant]
     Active Substance: PREDNISOLONE
     Indication: SINUSITIS
     Dosage: 5 ML, 1D, NON GSK
     Route: 048
     Dates: start: 20170920

REACTIONS (3)
  - Hospitalisation [Unknown]
  - Retching [Unknown]
  - Vomiting [Unknown]
